FAERS Safety Report 25526719 (Version 2)
Quarter: 2025Q3

REPORT INFORMATION
  Report Type: Spontaneous
  Country: RU (occurrence: RU)
  Receive Date: 20250707
  Receipt Date: 20250903
  Transmission Date: 20251021
  Serious: Yes (Death, Life-Threatening, Other)
  Sender: SERVIER
  Company Number: RU-SERVIER-S25009525

PATIENT

DRUGS (1)
  1. ONCASPAR [Suspect]
     Active Substance: PEGASPARGASE
     Indication: Acute lymphocytic leukaemia
     Route: 042
     Dates: start: 20250627

REACTIONS (8)
  - Cardiac arrest [Fatal]
  - Haemodialysis [Not Recovered/Not Resolved]
  - Hepatomegaly [Not Recovered/Not Resolved]
  - Oliguria [Not Recovered/Not Resolved]
  - Cardiac failure [Not Recovered/Not Resolved]
  - Alanine aminotransferase increased [Not Recovered/Not Resolved]
  - Aspartate aminotransferase increased [Not Recovered/Not Resolved]
  - Blood urea increased [Not Recovered/Not Resolved]

NARRATIVE: CASE EVENT DATE: 20250628
